FAERS Safety Report 20639188 (Version 2)
Quarter: 2022Q2

REPORT INFORMATION
  Report Type: Report from Study
  Country: US (occurrence: US)
  Receive Date: 20220326
  Receipt Date: 20220426
  Transmission Date: 20220721
  Serious: Yes (Other)
  Sender: FDA-Public Use
  Company Number: US-BRISTOL-MYERS SQUIBB COMPANY-2022-010499

PATIENT
  Sex: Female
  Weight: 50.8 kg

DRUGS (4)
  1. ELIQUIS [Suspect]
     Active Substance: APIXABAN
     Indication: Pulmonary embolism
     Dosage: DOSE : 5 MG;     FREQ : TWO TABLETS TWICE DAILY FOR 7 DAYS; THEN ONE TABLET TWICE DAILY
     Route: 048
     Dates: start: 20220312
  2. ELIQUIS [Suspect]
     Active Substance: APIXABAN
     Route: 048
  3. LISINOPRIL [Concomitant]
     Active Substance: LISINOPRIL
     Indication: Product used for unknown indication
     Route: 065
  4. SIMVASTATIN [Concomitant]
     Active Substance: SIMVASTATIN
     Indication: Product used for unknown indication
     Route: 065

REACTIONS (7)
  - Haematochezia [Unknown]
  - Faeces discoloured [Unknown]
  - Cough [Unknown]
  - Dyspnoea [Unknown]
  - Pain [Unknown]
  - Abdominal discomfort [Unknown]
  - Nausea [Unknown]
